FAERS Safety Report 6994442-8 (Version None)
Quarter: 2010Q3

REPORT INFORMATION
  Report Type: 
  Country: None (occurrence: None)
  Receive Date: 20100917
  Receipt Date: 20100908
  Transmission Date: 20110219
  Serious: Yes (Other)
  Sender: FDA-Public Use
  Company Number: JP-JNJFOC-20100903543

PATIENT
  Sex: Female
  Weight: 57 kg

DRUGS (25)
  1. DOXIL [Suspect]
     Indication: OVARIAN CANCER RECURRENT
     Route: 042
  2. DOXIL [Suspect]
     Route: 042
  3. DOXIL [Suspect]
     Route: 042
  4. DOXIL [Suspect]
     Route: 042
  5. DOXIL [Suspect]
     Route: 042
  6. DOXIL [Suspect]
     Route: 042
  7. RINDERON [Concomitant]
     Indication: PROPHYLAXIS
     Route: 048
  8. RINDERON [Concomitant]
     Route: 048
  9. RINDERON [Concomitant]
     Route: 048
  10. RINDERON [Concomitant]
     Route: 048
  11. RINDERON [Concomitant]
     Route: 048
  12. RINDERON [Concomitant]
     Route: 048
  13. ZYLORIC [Concomitant]
     Indication: PROPHYLAXIS
     Route: 048
  14. ZYLORIC [Concomitant]
     Route: 048
  15. ZYLORIC [Concomitant]
     Route: 048
  16. ZYLORIC [Concomitant]
     Route: 048
  17. ZYLORIC [Concomitant]
     Route: 048
  18. ZYLORIC [Concomitant]
     Route: 048
  19. HACHIAZULE [Concomitant]
     Indication: PROPHYLAXIS
     Route: 048
  20. DESPA [Concomitant]
     Indication: STOMATITIS
     Route: 048
  21. DERMOVATE [Concomitant]
     Indication: RASH
     Route: 061
  22. KETOPROFEN [Concomitant]
     Indication: BACK PAIN
     Route: 003
  23. VALTREX [Concomitant]
     Indication: HERPES ZOSTER
     Route: 048
  24. WHITE PETROLATUM [Concomitant]
     Indication: HERPES ZOSTER
     Route: 065
  25. SHAKUYAKUKANZOUTOU [Concomitant]
     Indication: BACK PAIN
     Route: 048

REACTIONS (4)
  - HERPES ZOSTER [None]
  - MYELODYSPLASTIC SYNDROME [None]
  - RASH [None]
  - STOMATITIS [None]
